FAERS Safety Report 5191445-3 (Version None)
Quarter: 2006Q4

REPORT INFORMATION
  Report Type: 
  Country: None (occurrence: None)
  Receive Date: 20061226
  Receipt Date: 20040621
  Transmission Date: 20070319
  Serious: Yes (Death, Hospitalization)
  Sender: FDA-Public Use
  Company Number: FR-MERCK-0406USA02171

PATIENT
  Age: 88 Year
  Sex: Male

DRUGS (3)
  1. MODURETIC 5-50 [Suspect]
     Indication: ESSENTIAL HYPERTENSION
     Route: 048
     Dates: start: 20020101, end: 20040115
  2. MODURETIC 5-50 [Suspect]
     Route: 048
     Dates: end: 20020501
  3. SECTRAL [Suspect]
     Indication: ESSENTIAL HYPERTENSION
     Route: 048
     Dates: end: 20040115

REACTIONS (6)
  - DEATH [None]
  - EOSINOPHILIA [None]
  - FOOD ALLERGY [None]
  - HYPERURICAEMIA [None]
  - MILK ALLERGY [None]
  - PRURITUS [None]
